FAERS Safety Report 17521149 (Version 2)
Quarter: 2020Q1

REPORT INFORMATION
  Report Type: Report from Study
  Country: US (occurrence: US)
  Receive Date: 20200310
  Receipt Date: 20200317
  Transmission Date: 20200409
  Serious: Yes (Death, Hospitalization, Other)
  Sender: FDA-Public Use
  Company Number: US-GILEAD-2020-0454240

PATIENT
  Age: 85 Year
  Sex: Male
  Weight: 97.96 kg

DRUGS (2)
  1. AMBRISENTAN [Suspect]
     Active Substance: AMBRISENTAN
     Indication: CHRONIC OBSTRUCTIVE PULMONARY DISEASE
     Dosage: 5 MG
     Route: 065
  2. AMBRISENTAN [Suspect]
     Active Substance: AMBRISENTAN
     Indication: PULMONARY HYPERTENSION
     Dosage: 10 MG
     Route: 065

REACTIONS (2)
  - Right ventricular failure [Unknown]
  - Cardio-respiratory arrest [Fatal]

NARRATIVE: CASE EVENT DATE: 20200307
